FAERS Safety Report 9076876 (Version 1)
Quarter: 2013Q1

REPORT INFORMATION
  Report Type: Report from Study
  Country: US (occurrence: US)
  Receive Date: 20130129
  Receipt Date: 20130129
  Transmission Date: 20140127
  Serious: No
  Sender: FDA-Public Use
  Company Number: US-ABBOTT-12P-163-0946316-00

PATIENT
  Age: 58 Year
  Sex: Female

DRUGS (7)
  1. HUMIRA 40 MG/0.8 ML PEN [Suspect]
     Indication: RHEUMATOID ARTHRITIS
  2. METHOTREXATE [Concomitant]
     Indication: PRODUCT USED FOR UNKNOWN INDICATION
     Dosage: 7.5MG = 3 TBAS ON MONDAY, AND 3 TABS ON TUESDAY
  3. IBUPROFEN [Concomitant]
     Indication: PAIN
     Dosage: 800MG  1TAB DAILY AS NEEDED
  4. SYNTHROID [Concomitant]
     Indication: HYPOTHYROIDISM
  5. LOVASTATIN [Concomitant]
     Indication: BLOOD CHOLESTEROL INCREASED
     Dosage: 40MG AT NIGHT
  6. ATENOLOL [Concomitant]
     Indication: HYPERTENSION
  7. TRIAMTERENE+HCTZ [Concomitant]
     Indication: HYPERTENSION
     Dosage: HALF TABLET DAILY

REACTIONS (3)
  - Joint effusion [Recovering/Resolving]
  - Arthralgia [Recovering/Resolving]
  - Joint effusion [Recovering/Resolving]
